FAERS Safety Report 18351401 (Version 4)
Quarter: 2021Q1

REPORT INFORMATION
  Report Type: Spontaneous
  Country: US (occurrence: US)
  Receive Date: 20201006
  Receipt Date: 20210308
  Transmission Date: 20210419
  Serious: Yes (Hospitalization, Other)
  Sender: FDA-Public Use
  Company Number: US-SHIRE-US202031776

PATIENT
  Sex: Female
  Weight: 93.42 kg

DRUGS (8)
  1. KALBITOR [Suspect]
     Active Substance: ECALLANTIDE
     Dosage: 10 MILLIGRAM/KILOGRAM, AS REQ^D
     Route: 058
  2. TAKHZYRO [Suspect]
     Active Substance: LANADELUMAB-FLYO
     Dosage: 300 MILLIGRAM, Q2WEEKS
     Route: 058
     Dates: start: 20191022
  3. TAKHZYRO [Suspect]
     Active Substance: LANADELUMAB-FLYO
     Indication: HEREDITARY ANGIOEDEMA
     Dosage: 2 DOSAGE FORM, EVERY 3 WK
     Route: 058
     Dates: start: 20181001
  4. TAKHZYRO [Suspect]
     Active Substance: LANADELUMAB-FLYO
     Dosage: 300 MG/2 ML, Q2WEEKS
     Route: 058
  5. KALBITOR [Suspect]
     Active Substance: ECALLANTIDE
     Indication: HEREDITARY ANGIOEDEMA
     Dosage: UNK
     Route: 058
     Dates: start: 20161128
  6. TAKHZYRO [Suspect]
     Active Substance: LANADELUMAB-FLYO
     Dosage: 300 MG/3 ML, Q2WEEKS
     Route: 058
  7. KALBITOR [Suspect]
     Active Substance: ECALLANTIDE
     Dosage: 10 MG/ML, PRN
     Route: 058
  8. KALBITOR [Suspect]
     Active Substance: ECALLANTIDE
     Dosage: 30 MILLIGRAM, PRN
     Route: 058
     Dates: start: 20191015

REACTIONS (4)
  - Arthropathy [Unknown]
  - Diverticulitis [Unknown]
  - Weight increased [Unknown]
  - Product availability issue [Unknown]
